FAERS Safety Report 18425246 (Version 1)
Quarter: 2020Q4

REPORT INFORMATION
  Report Type: Spontaneous
  Country: PT (occurrence: PT)
  Receive Date: 20201026
  Receipt Date: 20201026
  Transmission Date: 20210114
  Serious: Yes (Other)
  Sender: FDA-Public Use
  Company Number: NVSC2020PT281712

PATIENT
  Age: 65 Year
  Sex: Male

DRUGS (5)
  1. BICALUTAMIDA [Suspect]
     Active Substance: BICALUTAMIDE
     Dosage: 50 MG, QD (1 CP/DIA)
     Route: 048
     Dates: start: 20191210
  2. BICALUTAMIDA [Suspect]
     Active Substance: BICALUTAMIDE
     Indication: PROSTATE CANCER METASTATIC
     Dosage: 50 MG, QD (1 CP/DIA)
     Route: 048
     Dates: start: 20191210
  3. ELIGARD [Concomitant]
     Active Substance: LEUPROLIDE ACETATE
     Indication: PRODUCT USED FOR UNKNOWN INDICATION
     Dosage: 45 MG PER 6 MONTH (SOLVENT)
     Route: 065
  4. BICALUTAMIDA [Suspect]
     Active Substance: BICALUTAMIDE
     Dosage: 50 MG, QD (1 CP/DIA)
     Route: 048
     Dates: start: 20191210
  5. BICALUTAMIDA TEVA [Suspect]
     Active Substance: BICALUTAMIDE
     Indication: PROSTATE CANCER METASTATIC
     Dosage: 50 MG, QD
     Route: 048
     Dates: start: 20200310

REACTIONS (1)
  - Paraesthesia [Not Recovered/Not Resolved]

NARRATIVE: CASE EVENT DATE: 20200110
